FAERS Safety Report 12602318 (Version 3)
Quarter: 2016Q3

REPORT INFORMATION
  Report Type: Spontaneous
  Country: US (occurrence: US)
  Receive Date: 20160728
  Receipt Date: 20160916
  Transmission Date: 20161109
  Serious: Yes (Other)
  Sender: FDA-Public Use
  Company Number: US-PFIZER INC-2016358876

PATIENT
  Age: 69 Year
  Sex: Female
  Weight: 74 kg

DRUGS (17)
  1. CHANTIX [Suspect]
     Active Substance: VARENICLINE TARTRATE
     Dosage: 0.5 MG, 2X/DAY
     Route: 048
     Dates: start: 201607, end: 201607
  2. VESICARE [Concomitant]
     Active Substance: SOLIFENACIN SUCCINATE
     Indication: PROPHYLAXIS
     Dosage: 10 MG, 1X/DAY
  3. ALLEGRA-D [Concomitant]
     Active Substance: FEXOFENADINE\PSEUDOEPHEDRINE
     Indication: HYPERSENSITIVITY
     Dosage: UNK
  4. ZETIA [Concomitant]
     Active Substance: EZETIMIBE
     Indication: BLOOD CHOLESTEROL INCREASED
     Dosage: 10 MG, DAILY
     Route: 048
  5. CHANTIX [Suspect]
     Active Substance: VARENICLINE TARTRATE
     Indication: SMOKING CESSATION THERAPY
     Dosage: UNK
     Route: 048
  6. NITROSTAT [Concomitant]
     Active Substance: NITROGLYCERIN
     Indication: CARDIAC DISORDER
     Dosage: 0.4 MG, (EVERY 5 MINUTES UP TO 3 DOSES)
     Route: 060
  7. DULCOLAX NOS [Concomitant]
     Active Substance: BISACODYL OR DOCUSATE SODIUM
     Indication: CONSTIPATION
     Dosage: UNK (6 TIMES A DAY)
     Route: 048
  8. CLOPIDOGREL [Concomitant]
     Active Substance: CLOPIDOGREL BISULFATE
     Indication: CARDIAC DISORDER
     Dosage: 75 MG, 1X/DAY
     Route: 048
  9. BABY ASPIRIN [Concomitant]
     Active Substance: ASPIRIN
     Indication: MYOCARDIAL INFARCTION
     Dosage: UNK, 1X/DAY
     Route: 048
  10. CHANTIX [Suspect]
     Active Substance: VARENICLINE TARTRATE
     Dosage: 0.5 MG, 1X/DAY
     Route: 048
     Dates: start: 201607, end: 201607
  11. CALTRATE 600 +D PLUS [Concomitant]
     Indication: VITAMIN D DEFICIENCY
     Dosage: 2 DF, 1X/DAY
     Route: 048
  12. CHANTIX [Suspect]
     Active Substance: VARENICLINE TARTRATE
     Dosage: 0.5 MG, 2X/DAY
     Route: 048
     Dates: start: 201607, end: 2016
  13. OMEPRAZOLE. [Concomitant]
     Active Substance: OMEPRAZOLE
     Dosage: 40 MG, 1X/DAY (20 MG TWO CAPSULES)
     Route: 048
  14. LISINOPRIL. [Concomitant]
     Active Substance: LISINOPRIL
     Dosage: UNK
  15. METOPROLOL. [Concomitant]
     Active Substance: METOPROLOL
     Indication: CARDIAC DISORDER
     Dosage: 75 MG, DAILY (25 MG THREE PILLS)
     Route: 048
  16. FISH OIL [Concomitant]
     Active Substance: FISH OIL
     Dosage: 1200 MG, 1X/DAY
     Route: 048
  17. DULCOLAX NOS [Concomitant]
     Active Substance: BISACODYL OR DOCUSATE SODIUM
     Indication: DIARRHOEA

REACTIONS (3)
  - Myocardial infarction [Unknown]
  - Atrial fibrillation [Unknown]
  - Diarrhoea [Unknown]

NARRATIVE: CASE EVENT DATE: 201607
